FAERS Safety Report 8921615 (Version 2)
Quarter: 2013Q1

REPORT INFORMATION
  Report Type: Spontaneous
  Country: US (occurrence: US)
  Receive Date: 20121122
  Receipt Date: 20130207
  Transmission Date: 20140127
  Serious: Yes (Death, Hospitalization, Other)
  Sender: FDA-Public Use
  Company Number: PHEH2012US022593

PATIENT
  Age: 78 None
  Sex: Female
  Weight: 107.94 kg

DRUGS (50)
  1. GLEEVEC [Suspect]
     Indication: CHRONIC MYELOID LEUKAEMIA
     Dosage: 400 MG, QD
     Route: 048
     Dates: start: 20090707
  2. GLEEVEC [Suspect]
     Dosage: 300 MG, QD
     Route: 048
  3. GLEEVEC [Suspect]
     Dosage: 200 MG, PER DAY FOR THREE MONTH
     Route: 048
  4. GLEEVEC [Suspect]
     Dosage: 200 MG ALTERNATING WITH 300 MG DAILY
     Route: 048
  5. GLEEVEC [Suspect]
     Dosage: 300 MG, QD
     Route: 048
     Dates: end: 20121101
  6. IRON [Concomitant]
  7. CYANOCOBALAMIN [Concomitant]
     Dosage: 1000 UG, UNK
     Dates: start: 20120627
  8. DIFLUCAN [Concomitant]
     Dosage: 100 MG, UNK
     Route: 048
     Dates: start: 20120620
  9. ALLOPURINOL [Concomitant]
     Dosage: UNK UKN, UNK
     Route: 048
     Dates: start: 20120509
  10. ONDANSETRON [Concomitant]
     Dosage: 08 MG, UNK
     Route: 048
     Dates: start: 20110817
  11. ENSURE [Concomitant]
     Dosage: 08 OT, UNK
     Dates: start: 20110817
  12. ASMANEX [Concomitant]
     Dosage: 220 UG, UNK
     Dates: start: 20110817
  13. LASIX [Concomitant]
     Dosage: 30 MG, QD
     Route: 048
  14. ASPIRIN [Concomitant]
     Dosage: 81 MG, UNK
     Route: 048
  15. PRILOSEC [Concomitant]
     Dosage: 20 MG, UNK
  16. AMITIZA [Concomitant]
     Dosage: 8 UG, UNK
     Route: 048
  17. DIOVAN [Concomitant]
     Dosage: 320 MG, UNK
  18. MORPHINE [Concomitant]
     Dosage: 15 MG, UNK
  19. KLOR-CON [Concomitant]
     Dosage: 10 MEQ, UNK
     Route: 048
  20. NYSTATIN [Concomitant]
  21. LEVOTHROID [Concomitant]
     Dosage: 125 UG, UNK
     Route: 048
  22. WELCHOL [Concomitant]
     Dosage: 625 MG, UNK
     Route: 048
  23. ZOFRAN [Concomitant]
     Route: 048
  24. ALPHAGAN P [Concomitant]
  25. ALLEGRA [Concomitant]
     Dosage: 180 MG, UNK
  26. LUMIGAN [Concomitant]
  27. SINGULAIR [Concomitant]
     Dosage: 10 MG, UNK
  28. CLONAZEPAM [Concomitant]
     Dosage: 1 MG, UNK
  29. CLONIDINE HCL [Concomitant]
     Dosage: 0.2 MG, UNK
  30. PREDNISONE [Concomitant]
     Indication: POLYMYALGIA RHEUMATICA
     Dosage: 10 MG, UNK
  31. CELEXA [Concomitant]
     Dosage: 20 MG, UNK
  32. DETROL [Concomitant]
     Dosage: 4 MG, UNK
  33. BYSTOLIC [Concomitant]
     Dosage: 5 MG, UNK
     Route: 048
  34. MORPHINE SULPHATE [Concomitant]
  35. MEROPENEM [Concomitant]
  36. HYDRALAZINE [Concomitant]
  37. TRAVATAN [Concomitant]
  38. CITALOPRAM [Concomitant]
     Dosage: 20 MG, UNK
  39. FLUCONAZOLE [Concomitant]
     Dosage: 100 MG, UNK
  40. ALBUTEROL [Concomitant]
  41. NISTATIN [Concomitant]
  42. FLAGYL [Concomitant]
  43. VANCOMYCIN [Concomitant]
     Dosage: 500 MG, UNK
     Route: 048
  44. CLONIDINE [Concomitant]
     Dosage: 0.2 MG, UNK
  45. LABETALOL [Concomitant]
  46. NITROGLYCERIN [Concomitant]
     Dosage: UNK UKN, UNK
  47. ROCEPHIN [Concomitant]
     Dosage: UNK UKN, UNK
  48. BRIMONIDINE [Concomitant]
     Dosage: UNK UKN, UNK
  49. OMNICEF [Concomitant]
     Dosage: UNK UKN, UNK
  50. SYNTHROID [Concomitant]
     Dosage: UNK UKN, UNK

REACTIONS (55)
  - Death [Fatal]
  - Peritonitis [Unknown]
  - Coma [Unknown]
  - Cardiac failure congestive [Unknown]
  - Diastolic dysfunction [Unknown]
  - Mental disorder [Unknown]
  - Chronic obstructive pulmonary disease [Unknown]
  - Deep vein thrombosis [Unknown]
  - Cardiomegaly [Unknown]
  - Aortic calcification [Unknown]
  - Gastrooesophageal reflux disease [Unknown]
  - Histoplasmosis [Unknown]
  - Mastoiditis [Unknown]
  - Cerebrovascular accident [Unknown]
  - White blood cell count increased [Unknown]
  - Renal failure chronic [Unknown]
  - Proteinuria [Unknown]
  - Colitis [Unknown]
  - Sepsis [Unknown]
  - Acute myocardial infarction [Unknown]
  - Renal failure [Unknown]
  - Hypertension [Unknown]
  - Urinary tract infection [Unknown]
  - Septic shock [Unknown]
  - Pyrexia [Unknown]
  - Cellulitis [Unknown]
  - Leukocytosis [Unknown]
  - Embolism venous [Unknown]
  - Rheumatoid arthritis [Unknown]
  - Anaemia [Unknown]
  - Fungal infection [Unknown]
  - Pleural effusion [Unknown]
  - Sinusitis [Unknown]
  - Hypotension [Unknown]
  - Leukopenia [Unknown]
  - Acute abdomen [Unknown]
  - Decubitus ulcer [Unknown]
  - Micturition urgency [Unknown]
  - Enterobacter test positive [Unknown]
  - Pain [Unknown]
  - Oedema [Unknown]
  - Malaise [Unknown]
  - Fatigue [Unknown]
  - Iron deficiency anaemia [Unknown]
  - Anxiety [Unknown]
  - Depression [Unknown]
  - Joint swelling [Unknown]
  - Rash [Unknown]
  - Blood potassium increased [Unknown]
  - Dyspnoea [Unknown]
  - Lethargy [Unknown]
  - Vomiting [Unknown]
  - Headache [Unknown]
  - Chills [Unknown]
  - Blood creatinine increased [Unknown]
